FAERS Safety Report 5335906-2 (Version None)
Quarter: 2007Q2

REPORT INFORMATION
  Report Type: 
  Country: None (occurrence: None)
  Receive Date: 20070302
  Receipt Date: 20070111
  Transmission Date: 20071010
  Serious: No
  Sender: FDA-Public Use
  Company Number: PHEH2007US00810

PATIENT
  Sex: Male

DRUGS (4)
  1. EXJADE [Suspect]
     Indication: BLOOD IRON INCREASED
     Dosage: 1275 MG, QD, ORAL
     Route: 048
     Dates: start: 20061025
  2. GLYBURIDE [Concomitant]
  3. ACIPHEX [Concomitant]
  4. DESMOPRESSIN ACETATE [Concomitant]

REACTIONS (1)
  - MUSCLE TWITCHING [None]
